FAERS Safety Report 15260936 (Version 1)
Quarter: 2018Q3

REPORT INFORMATION
  Report Type: Spontaneous
  Country: US (occurrence: US)
  Receive Date: 20180719
  Receipt Date: 20180719
  Transmission Date: 20181010
  Serious: No
  Sender: FDA-Public Use
  Company Number: None

PATIENT
  Age: 40 Year
  Sex: Female
  Weight: 64.8 kg

DRUGS (5)
  1. ADDERALL [Concomitant]
     Active Substance: AMPHETAMINE ASPARTATE\AMPHETAMINE SULFATE\DEXTROAMPHETAMINE SACCHARATE\DEXTROAMPHETAMINE SULFATE
  2. VITAMIN C [Concomitant]
     Active Substance: ASCORBIC ACID
  3. MAGNESIUM CALCIUM ZINC [Concomitant]
  4. DEXTROAMPHET SACCHARAT, AMPHET ASPARTATE, DEXTROAMPHET SULFATE AND AMPHET SULFAT [Suspect]
     Active Substance: AMPHETAMINE ASPARTATE\AMPHETAMINE SULFATE\DEXTROAMPHETAMINE SACCHARATE\DEXTROAMPHETAMINE SULFATE
     Indication: ATTENTION DEFICIT/HYPERACTIVITY DISORDER
     Dosage: ?          QUANTITY:1 DF DOSAGE FORM;?
     Route: 048
     Dates: end: 20180716
  5. FISH OIL [Concomitant]
     Active Substance: FISH OIL

REACTIONS (7)
  - Asthenopia [None]
  - Anxiety [None]
  - Product taste abnormal [None]
  - Myalgia [None]
  - Tremor [None]
  - Tongue disorder [None]
  - Product quality issue [None]

NARRATIVE: CASE EVENT DATE: 20180716
